FAERS Safety Report 12551729 (Version 2)
Quarter: 2016Q3

REPORT INFORMATION
  Report Type: Spontaneous
  Country: CH (occurrence: CH)
  Receive Date: 20160713
  Receipt Date: 20160727
  Transmission Date: 20161109
  Serious: Yes (Death)
  Sender: FDA-Public Use
  Company Number: PHHY2016CH095525

PATIENT
  Sex: Male

DRUGS (6)
  1. BILOL [Concomitant]
     Active Substance: BISOPROLOL
     Indication: CONGESTIVE CARDIOMYOPATHY
     Dosage: 5 MG, BID
     Route: 065
     Dates: start: 20150908
  2. FURSOL [Concomitant]
     Indication: CONGESTIVE CARDIOMYOPATHY
     Dosage: 40 MG, PRN
     Route: 065
     Dates: start: 20150908
  3. FURSOL [Concomitant]
     Indication: CARDIAC FAILURE CHRONIC
  4. ENTRESTO [Suspect]
     Active Substance: SACUBITRIL\VALSARTAN
     Indication: CORONARY ARTERY DISEASE
     Dosage: 400 MG, BID
     Route: 065
     Dates: start: 20160518
  5. ENTRESTO [Suspect]
     Active Substance: SACUBITRIL\VALSARTAN
     Indication: CARDIAC FAILURE CHRONIC
     Dosage: 200 MG, BID
     Route: 065
     Dates: start: 20160501, end: 20160517
  6. BILOL [Concomitant]
     Active Substance: BISOPROLOL
     Indication: CARDIAC FAILURE CHRONIC

REACTIONS (4)
  - Ventricular arrhythmia [Fatal]
  - Patient-device incompatibility [None]
  - Blood creatinine increased [Unknown]
  - Sudden cardiac death [Fatal]

NARRATIVE: CASE EVENT DATE: 20160531
